FAERS Safety Report 25502443 (Version 2)
Quarter: 2025Q3

REPORT INFORMATION
  Report Type: Spontaneous
  Country: EU (occurrence: EU)
  Receive Date: 20250702
  Receipt Date: 20250722
  Transmission Date: 20251020
  Serious: Yes (Hospitalization)
  Sender: TEVA
  Company Number: EU-TEVA-VS-3346509

PATIENT
  Age: 19 Year
  Sex: Female

DRUGS (3)
  1. CABERGOLINE [Suspect]
     Active Substance: CABERGOLINE
     Indication: Prolactin-producing pituitary tumour
     Dosage: BIWEEKLY
     Route: 065
  2. CABERGOLINE [Suspect]
     Active Substance: CABERGOLINE
     Indication: Prolactin-producing pituitary tumour
     Route: 065
  3. BROMOCRIPTINE [Suspect]
     Active Substance: BROMOCRIPTINE
     Indication: Prolactin-producing pituitary tumour
     Route: 065

REACTIONS (3)
  - Cerebrospinal fluid leakage [Recovered/Resolved]
  - Maternal exposure during pregnancy [Unknown]
  - Cerebrospinal fistula [Recovered/Resolved]
